FAERS Safety Report 14951383 (Version 1)
Quarter: 2018Q2

REPORT INFORMATION
  Report Type: Spontaneous
  Country: US (occurrence: US)
  Receive Date: 20180530
  Receipt Date: 20180530
  Transmission Date: 20180711
  Serious: No
  Sender: FDA-Public Use
  Company Number: US-009507513-1805USA000749

PATIENT
  Age: 73 Year
  Sex: Female

DRUGS (2)
  1. ASMANEX [Suspect]
     Active Substance: MOMETASONE FUROATE
     Indication: DYSPNOEA
     Dosage: UNK
     Route: 055
     Dates: start: 201709
  2. FLONASE [Concomitant]
     Active Substance: FLUTICASONE PROPIONATE
     Dosage: UNK

REACTIONS (2)
  - Product container issue [Recovered/Resolved]
  - Drug ineffective [Recovered/Resolved]

NARRATIVE: CASE EVENT DATE: 20180430
